FAERS Safety Report 15088144 (Version 10)
Quarter: 2019Q1

REPORT INFORMATION
  Report Type: Report from Study
  Country: DE (occurrence: DE)
  Receive Date: 20180629
  Receipt Date: 20190321
  Transmission Date: 20190417
  Serious: Yes (Death, Hospitalization, Other)
  Sender: FDA-Public Use
  Company Number: DE-BRISTOL-MYERS SQUIBB COMPANY-BMS-2018-028750

PATIENT
  Age: 57 Year
  Sex: Male

DRUGS (3)
  1. NIVOLUMAB [Suspect]
     Active Substance: NIVOLUMAB
     Indication: PRODUCT USED FOR UNKNOWN INDICATION
     Dosage: 480 MG, Q4WK
     Route: 065
     Dates: start: 20180704
  2. NIVOLUMAB [Suspect]
     Active Substance: NIVOLUMAB
     Indication: MALIGNANT MELANOMA
     Dosage: 80 MG, Q3WK
     Route: 042
     Dates: start: 20180214, end: 20181121
  3. IPILIMUMAB [Suspect]
     Active Substance: IPILIMUMAB
     Indication: MALIGNANT MELANOMA
     Dosage: 250 MG, Q3WK
     Route: 042
     Dates: start: 20180214, end: 20180509

REACTIONS (5)
  - Lipase increased [Recovered/Resolved]
  - Malignant melanoma [Fatal]
  - Facial paralysis [Not Recovered/Not Resolved]
  - Diarrhoea [Recovered/Resolved]
  - Hemiparesis [Fatal]

NARRATIVE: CASE EVENT DATE: 20180326
